FAERS Safety Report 23515968 (Version 2)
Quarter: 2025Q1

REPORT INFORMATION
  Report Type: Spontaneous
  Country: US (occurrence: US)
  Receive Date: 20240213
  Receipt Date: 20250218
  Transmission Date: 20250409
  Serious: No
  Sender: MERZ
  Company Number: US-ACORDA-ACO_175803_2023

PATIENT
  Sex: Male
  Weight: 68.934 kg

DRUGS (10)
  1. INBRIJA [Suspect]
     Active Substance: LEVODOPA
     Indication: Parkinson^s disease
  2. INBRIJA [Suspect]
     Active Substance: LEVODOPA
     Indication: On and off phenomenon
  3. INBRIJA [Suspect]
     Active Substance: LEVODOPA
     Dates: start: 20230613
  4. INBRIJA [Suspect]
     Active Substance: LEVODOPA
     Dates: start: 20230613
  5. ALBUTEROL [Concomitant]
     Active Substance: ALBUTEROL
     Indication: Product used for unknown indication
     Route: 065
  6. AMLODIPINE [Concomitant]
     Active Substance: AMLODIPINE BESYLATE
     Indication: Product used for unknown indication
     Route: 065
  7. LOSARTAN [Concomitant]
     Active Substance: LOSARTAN
     Indication: Product used for unknown indication
     Route: 065
  8. VITAMIN B [Concomitant]
     Active Substance: VITAMIN B
     Indication: Product used for unknown indication
     Route: 065
  9. ZINC [Concomitant]
     Active Substance: ZINC
     Indication: Product used for unknown indication
     Route: 065
  10. CARBIDOPA\LEVODOPA [Concomitant]
     Active Substance: CARBIDOPA\LEVODOPA
     Indication: Product used for unknown indication
     Route: 065

REACTIONS (9)
  - Choking [Unknown]
  - Device issue [Not Recovered/Not Resolved]
  - Device delivery system issue [Unknown]
  - Device use issue [Unknown]
  - Speech disorder [Unknown]
  - Product residue present [Not Recovered/Not Resolved]
  - Drug effect less than expected [Not Recovered/Not Resolved]
  - Product cleaning inadequate [Not Recovered/Not Resolved]
  - Cough [Not Recovered/Not Resolved]
